FAERS Safety Report 22256564 (Version 1)
Quarter: 2023Q2

REPORT INFORMATION
  Report Type: Spontaneous
  Country: CN (occurrence: CN)
  Receive Date: 20230426
  Receipt Date: 20230426
  Transmission Date: 20230722
  Serious: Yes (Hospitalization, Other)
  Sender: FDA-Public Use
  Company Number: CN-BoehringerIngelheim-2023-BI-231398

PATIENT
  Age: 41 Year
  Sex: Female

DRUGS (9)
  1. EMPAGLIFLOZIN [Suspect]
     Active Substance: EMPAGLIFLOZIN
     Indication: Type 2 diabetes mellitus
     Route: 048
  2. EMPAGLIFLOZIN [Suspect]
     Active Substance: EMPAGLIFLOZIN
     Route: 048
  3. EMPAGLIFLOZIN [Suspect]
     Active Substance: EMPAGLIFLOZIN
     Route: 048
  4. DULAGLUTIDE [Suspect]
     Active Substance: DULAGLUTIDE
     Indication: Type 2 diabetes mellitus
     Route: 058
  5. DULAGLUTIDE [Suspect]
     Active Substance: DULAGLUTIDE
     Route: 058
     Dates: start: 20210227
  6. METFORMIN [Concomitant]
     Active Substance: METFORMIN HYDROCHLORIDE
     Indication: Type 2 diabetes mellitus
     Route: 048
  7. GLIMEPIRIDE [Concomitant]
     Active Substance: GLIMEPIRIDE
     Indication: Type 2 diabetes mellitus
  8. SITAGLIPTIN [Concomitant]
     Active Substance: SITAGLIPTIN
     Indication: Type 2 diabetes mellitus
  9. ACARBOSE [Concomitant]
     Active Substance: ACARBOSE
     Indication: Type 2 diabetes mellitus

REACTIONS (11)
  - Diabetic ketoacidosis [Recovered/Resolved]
  - Decreased appetite [Recovering/Resolving]
  - Haematemesis [Unknown]
  - Haematochezia [Unknown]
  - Vulvovaginal pruritus [Unknown]
  - Lipids abnormal [Recovering/Resolving]
  - Infection [Recovering/Resolving]
  - Hepatic function abnormal [Recovering/Resolving]
  - Type 2 diabetes mellitus [Recovering/Resolving]
  - Hypothyroidism [Recovering/Resolving]
  - Gastrooesophageal reflux disease [Unknown]

NARRATIVE: CASE EVENT DATE: 20210228
